FAERS Safety Report 8256560-6 (Version None)
Quarter: 2012Q2

REPORT INFORMATION
  Report Type: 
  Country: None (occurrence: None)
  Receive Date: 20120403
  Receipt Date: 20120327
  Transmission Date: 20120825
  Serious: Yes (Hospitalization, Other)
  Sender: FDA-Public Use
  Company Number: US-PFIZER INC-2012079123

PATIENT
  Sex: Male
  Weight: 60.771 kg

DRUGS (2)
  1. LATANOPROST [Suspect]
     Indication: GLAUCOMA
     Dosage: ONE DROP IN LEFT EYE DAILY
     Route: 047
     Dates: start: 20100101
  2. BYSTOLIC [Concomitant]
     Indication: MYOCARDIAL INFARCTION
     Dosage: 5 MG DAILY

REACTIONS (1)
  - OESOPHAGEAL CARCINOMA [None]
